FAERS Safety Report 8690159 (Version 2)
Quarter: 2012Q4

REPORT INFORMATION
  Report Type: 
  Country: US (occurrence: US)
  Receive Date: 20120727
  Receipt Date: 20121017
  Transmission Date: 20130627
  Serious: No
  Sender: FDA-Public Use
  Company Number: US-ASTRAZENECA-2012SE14021

PATIENT
  Age: 38 Year
  Sex: Female
  Weight: 115.2 kg

DRUGS (7)
  1. SEROQUEL [Suspect]
     Route: 048
     Dates: start: 20090502, end: 20120214
  2. PAXIL [Concomitant]
     Indication: DEPRESSION
     Route: 048
     Dates: start: 20110112, end: 20120122
  3. AMARYL [Concomitant]
     Indication: TYPE 2 DIABETES MELLITUS
     Route: 048
     Dates: start: 20110225, end: 20120222
  4. XANAX [Concomitant]
     Indication: DEPRESSION
  5. BENEDRYL [Concomitant]
     Dosage: 25 MG PRN QHS
  6. NOVOLIN 70/30 [Concomitant]
     Dosage: 70/30 4 AM AND 2 PM
  7. PNV [Concomitant]

REACTIONS (7)
  - Exposure during pregnancy [Unknown]
  - Premature baby [Unknown]
  - Type 2 diabetes mellitus [Unknown]
  - Hypothyroidism [Unknown]
  - Depression [Unknown]
  - Obesity [Unknown]
  - Dizziness [Unknown]
